FAERS Safety Report 8605894-1 (Version None)
Quarter: 2012Q3

REPORT INFORMATION
  Report Type: 
  Country: None (occurrence: None)
  Receive Date: 20120820
  Receipt Date: 20120810
  Transmission Date: 20120928
  Serious: Yes (Other)
  Sender: FDA-Public Use
  Company Number: FR-GLAXOSMITHKLINE-B0821965A

PATIENT
  Sex: Male

DRUGS (4)
  1. CLOBAZAM [Concomitant]
     Indication: PRODUCT USED FOR UNKNOWN INDICATION
     Route: 065
     Dates: start: 20120501
  2. LAMICTAL [Suspect]
     Indication: PRODUCT USED FOR UNKNOWN INDICATION
     Route: 048
     Dates: start: 20120201, end: 20120712
  3. TOPIRAMATE [Concomitant]
     Indication: PRODUCT USED FOR UNKNOWN INDICATION
     Route: 065
     Dates: start: 20111201
  4. AUGMENTIN '500' [Concomitant]
     Indication: TONSILLITIS STREPTOCOCCAL
     Route: 065

REACTIONS (4)
  - GUTTATE PSORIASIS [None]
  - PARAKERATOSIS [None]
  - RASH [None]
  - TOXIC SKIN ERUPTION [None]
